FAERS Safety Report 15292692 (Version 1)
Quarter: 2018Q4

REPORT INFORMATION
  Report Type: Spontaneous
  Country: US (occurrence: US)
  Receive Date: 20180819
  Receipt Date: 20180819
  Transmission Date: 20190204
  Serious: No
  Sender: FDA-Public Use
  Company Number: US-EX USA HOLDINGS-EXHL20180413

PATIENT
  Sex: Female

DRUGS (2)
  1. BENZNIDAZOLE. [Suspect]
     Active Substance: BENZNIDAZOLE
     Dosage: 1 TABLET
     Route: 048
  2. BENZNIDAZOLE. [Suspect]
     Active Substance: BENZNIDAZOLE
     Indication: CHAGAS^ CARDIOMYOPATHY
     Dosage: 2 TABLETS
     Route: 048
     Dates: start: 20180627

REACTIONS (5)
  - Product use issue [None]
  - Arthralgia [Not Recovered/Not Resolved]
  - Incorrect dose administered [None]
  - Joint stiffness [Not Recovered/Not Resolved]
  - Joint swelling [Not Recovered/Not Resolved]
